FAERS Safety Report 11915169 (Version 1)
Quarter: 2016Q1

REPORT INFORMATION
  Report Type: Spontaneous
  Country: US (occurrence: US)
  Receive Date: 20160114
  Receipt Date: 20160114
  Transmission Date: 20160526
  Serious: No
  Sender: FDA-Public Use
  Company Number: US-AMGEN-USASP2016002511

PATIENT
  Sex: Male

DRUGS (1)
  1. ENBREL [Suspect]
     Active Substance: ETANERCEPT
     Indication: PSORIASIS
     Dosage: 50 MG, 2 TIMES/WK
     Route: 065
     Dates: start: 201512

REACTIONS (10)
  - Injection site warmth [Unknown]
  - Injection site swelling [Unknown]
  - Drug dose omission [Unknown]
  - Musculoskeletal discomfort [Unknown]
  - Injection site urticaria [Unknown]
  - Mobility decreased [Unknown]
  - Muscle tightness [Unknown]
  - Urticaria [Unknown]
  - Injection site reaction [Unknown]
  - Injection site rash [Unknown]
